FAERS Safety Report 21972306 (Version 2)
Quarter: 2023Q1

REPORT INFORMATION
  Report Type: Spontaneous
  Country: IT (occurrence: IT)
  Receive Date: 20230209
  Receipt Date: 20230210
  Transmission Date: 20230417
  Serious: Yes (Death, Hospitalization, Other)
  Sender: FDA-Public Use
  Company Number: IT-009507513-2301ITA009364

PATIENT
  Age: 84 Year
  Sex: Male
  Weight: 70 kg

DRUGS (1)
  1. PEMBROLIZUMAB [Suspect]
     Active Substance: PEMBROLIZUMAB
     Indication: Desmoplastic melanoma
     Dosage: 400 MG// EVERY 6 WEEKS
     Dates: start: 20221214

REACTIONS (2)
  - Immune-mediated myasthenia gravis [Fatal]
  - Respiratory failure [Fatal]

NARRATIVE: CASE EVENT DATE: 20230116
